FAERS Safety Report 7095362-3 (Version None)
Quarter: 2010Q4

REPORT INFORMATION
  Report Type: 
  Country: None (occurrence: None)
  Receive Date: 20101111
  Receipt Date: 20101104
  Transmission Date: 20110411
  Serious: Yes (Death, Hospitalization, Other)
  Sender: FDA-Public Use
  Company Number: US-CELGENEUS-163-21880-10091455

PATIENT
  Sex: Female

DRUGS (10)
  1. REVLIMID [Suspect]
     Indication: MULTIPLE MYELOMA
     Route: 048
     Dates: start: 20100101
  2. DECADRON [Concomitant]
     Route: 065
     Dates: start: 20100101
  3. MELPHALAN HYDROCHLORIDE [Concomitant]
     Route: 065
     Dates: start: 20100727
  4. PREDNISONE [Concomitant]
     Route: 065
     Dates: start: 20100727
  5. VELCADE [Concomitant]
     Route: 065
     Dates: start: 20100727
  6. ZOMETA [Concomitant]
     Route: 065
     Dates: start: 20100101
  7. NIFEDIPINE [Concomitant]
     Route: 065
  8. DIOVAN [Concomitant]
     Route: 065
  9. PROTONIX [Concomitant]
     Route: 065
  10. METOPROLOL [Concomitant]
     Route: 065

REACTIONS (5)
  - ANAEMIA [None]
  - DEATH [None]
  - INTESTINAL ISCHAEMIA [None]
  - LEUKAEMIA PLASMACYTIC [None]
  - MULTIPLE MYELOMA [None]
